FAERS Safety Report 11914375 (Version 1)
Quarter: 2016Q1

REPORT INFORMATION
  Report Type: Spontaneous
  Country: US (occurrence: US)
  Receive Date: 20160113
  Receipt Date: 20160113
  Transmission Date: 20160526
  Serious: No
  Sender: FDA-Public Use
  Company Number: US-ENDO PHARMACEUTICALS INC.-2015-003239

PATIENT
  Age: 47 Year
  Sex: Male
  Weight: 91.25 kg

DRUGS (15)
  1. CARVEDILOL. [Concomitant]
     Active Substance: CARVEDILOL
     Indication: CARDIAC DISORDER
  2. CHERATUSSIN AC [Suspect]
     Active Substance: CODEINE PHOSPHATE\GUAIFENESIN
     Indication: ACUTE SINUSITIS
     Dosage: 5 ML EVERY 4 TO 6 HOURS AS NEEDED
     Route: 065
     Dates: start: 20150902
  3. ROCEPHIN [Suspect]
     Active Substance: CEFTRIAXONE SODIUM
     Indication: ACUTE SINUSITIS
     Route: 030
     Dates: start: 20150906
  4. ASPIRIN EC 5 GR [Concomitant]
     Indication: CARDIAC DISORDER
  5. ALBUTEROL SULFATE. [Suspect]
     Active Substance: ALBUTEROL SULFATE
     Indication: COUGH
  6. CEFDINIR. [Suspect]
     Active Substance: CEFDINIR
     Indication: ACUTE SINUSITIS
     Route: 065
     Dates: start: 20150902
  7. OMEGA 3 [Concomitant]
     Active Substance: OMEGA-3 FATTY ACIDS
     Indication: CARDIAC DISORDER
  8. CELESTONE [Suspect]
     Active Substance: BETAMETHASONE
     Indication: ACUTE SINUSITIS
     Route: 030
     Dates: start: 20150906
  9. LISINOPRIL TABLETS 20MG [Concomitant]
     Active Substance: LISINOPRIL
     Indication: CARDIAC DISORDER
  10. ALBUTEROL SULFATE. [Suspect]
     Active Substance: ALBUTEROL SULFATE
     Indication: ACUTE SINUSITIS
     Route: 065
     Dates: start: 20150906
  11. CHERATUSSIN AC [Suspect]
     Active Substance: CODEINE PHOSPHATE\GUAIFENESIN
     Indication: COUGH
  12. ROCEPHIN [Suspect]
     Active Substance: CEFTRIAXONE SODIUM
     Indication: COUGH
  13. CELESTONE [Suspect]
     Active Substance: BETAMETHASONE
     Indication: COUGH
  14. CEFDINIR. [Suspect]
     Active Substance: CEFDINIR
     Indication: COUGH
  15. SIMVASTATIN. [Concomitant]
     Active Substance: SIMVASTATIN
     Indication: LIPIDS

REACTIONS (1)
  - Drug ineffective [Unknown]

NARRATIVE: CASE EVENT DATE: 201509
